FAERS Safety Report 26171751 (Version 1)
Quarter: 2025Q4

REPORT INFORMATION
  Report Type: Spontaneous
  Country: US (occurrence: US)
  Receive Date: 20251217
  Receipt Date: 20251217
  Transmission Date: 20260117
  Serious: Yes (Other)
  Sender: PURDUE
  Company Number: US-PURDUE-USA-2025-0323055

PATIENT
  Age: 19 Year

DRUGS (2)
  1. DEXTROAMPHETAMINE SACCHARATE, AMPHETAMINE ASPARTATE, DEXTROAMPHETAMINE [Suspect]
     Active Substance: AMPHETAMINE ASPARTATE\AMPHETAMINE SULFATE\DEXTROAMPHETAMINE SACCHARATE\DEXTROAMPHETAMINE SULFATE
     Indication: Product used for unknown indication
     Dosage: UNK
     Route: 048
  2. BUPROPION [Suspect]
     Active Substance: BUPROPION
     Indication: Product used for unknown indication
     Dosage: SIXTY 100 MG TABLETS
     Route: 048

REACTIONS (10)
  - Brugada syndrome [Unknown]
  - Unresponsive to stimuli [Unknown]
  - Major depression [Unknown]
  - Apnoea [Unknown]
  - Hallucination, visual [Unknown]
  - Overdose [Unknown]
  - Generalised anxiety disorder [Unknown]
  - Drug screen positive [Unknown]
  - Hypotension [Unknown]
  - Agitation [Unknown]
